FAERS Safety Report 15256343 (Version 1)
Quarter: 2018Q3

REPORT INFORMATION
  Report Type: Spontaneous
  Country: FR (occurrence: FR)
  Receive Date: 20180808
  Receipt Date: 20180808
  Transmission Date: 20181010
  Serious: Yes (Other)
  Sender: FDA-Public Use
  Company Number: FR-ALLERGAN-1839101US

PATIENT
  Age: 21 Year
  Sex: Female

DRUGS (3)
  1. PARACETAMOL [Concomitant]
     Active Substance: ACETAMINOPHEN
     Indication: PAIN
     Dosage: UNK
     Route: 048
     Dates: start: 20180618
  2. ESCITALOPRAM OXALATE ? BP [Suspect]
     Active Substance: ESCITALOPRAM OXALATE
     Indication: DEPRESSION
     Dosage: UNK
     Route: 048
  3. TRAMADOL. [Interacting]
     Active Substance: TRAMADOL
     Indication: PAIN
     Dosage: UNK
     Route: 048
     Dates: start: 20180618

REACTIONS (9)
  - Tremor [Unknown]
  - Drug interaction [Unknown]
  - Night sweats [Unknown]
  - Pruritus [Unknown]
  - Dizziness [Unknown]
  - Serotonin syndrome [Unknown]
  - Nausea [Unknown]
  - Malaise [Unknown]
  - Hyperthermia [Unknown]

NARRATIVE: CASE EVENT DATE: 20180619
